FAERS Safety Report 7028315-1 (Version None)
Quarter: 2010Q4

REPORT INFORMATION
  Report Type: 
  Country: None (occurrence: None)
  Receive Date: 20101005
  Receipt Date: 20100927
  Transmission Date: 20110411
  Serious: Yes (Hospitalization, Other)
  Sender: FDA-Public Use
  Company Number: CA-ROCHE-724844

PATIENT
  Sex: Female
  Weight: 67 kg

DRUGS (2)
  1. HERCEPTIN [Suspect]
     Dosage: 3 CYCLES
     Route: 042
     Dates: start: 20100726
  2. TAXOL [Suspect]
     Indication: BREAST CANCER
     Dosage: STOPPED AFTER THREE CYCLES
     Route: 042
     Dates: start: 20100726

REACTIONS (3)
  - GRAND MAL CONVULSION [None]
  - HYPERTENSION [None]
  - REVERSIBLE POSTERIOR LEUKOENCEPHALOPATHY SYNDROME [None]
